FAERS Safety Report 16763659 (Version 1)
Quarter: 2019Q3

REPORT INFORMATION
  Report Type: Spontaneous
  Country: DE (occurrence: DE)
  Receive Date: 20190902
  Receipt Date: 20190902
  Transmission Date: 20191005
  Serious: Yes (Hospitalization, Other)
  Sender: FDA-Public Use
  Company Number: DE-009507513-1908DEU005938

PATIENT
  Age: 66 Year
  Sex: Male
  Weight: 78 kg

DRUGS (1)
  1. KEYTRUDA [Suspect]
     Active Substance: PEMBROLIZUMAB
     Indication: NON-SMALL CELL LUNG CANCER
     Dosage: 200 MILLIGRAM, Q3W
     Route: 042
     Dates: start: 20181221, end: 20190725

REACTIONS (4)
  - Seizure [Unknown]
  - Enuresis [Unknown]
  - Drug eruption [Unknown]
  - Infection [Unknown]

NARRATIVE: CASE EVENT DATE: 20190731
